FAERS Safety Report 6021012-0 (Version None)
Quarter: 2008Q4

REPORT INFORMATION
  Report Type: 
  Country: None (occurrence: None)
  Receive Date: 20081229
  Receipt Date: 20081223
  Transmission Date: 20090506
  Serious: Yes (Life-Threatening)
  Sender: FDA-Public Use
  Company Number: US-KINGPHARMUSA00001-K200801449

PATIENT
  Age: 84 Year
  Sex: Female

DRUGS (6)
  1. ALTACE [Suspect]
     Indication: CARDIAC FAILURE
     Dosage: 2.5 MG, QD
     Route: 048
     Dates: end: 20081112
  2. SPIRONOL [Suspect]
     Dosage: 50 MG, QD
     Route: 048
     Dates: end: 20081112
  3. ACARD [Concomitant]
     Dosage: 75 MG, UNK
     Route: 048
  4. MONONIT [Concomitant]
     Dosage: 40 MG, UNK
     Route: 048
     Dates: end: 20081112
  5. MOLSIDOMIN [Concomitant]
     Dosage: 8 MG, UNK
     Route: 048
     Dates: end: 20081112
  6. KALIUM                             /00031402/ [Concomitant]
     Dosage: UNK
     Dates: end: 20081112

REACTIONS (3)
  - BRADYCARDIA [None]
  - HYPERKALAEMIA [None]
  - RENAL FAILURE [None]
